FAERS Safety Report 8094335-1 (Version None)
Quarter: 2012Q1

REPORT INFORMATION
  Report Type: 
  Country: None (occurrence: None)
  Receive Date: 20120130
  Receipt Date: 20120118
  Transmission Date: 20120608
  Serious: Yes (Other)
  Sender: FDA-Public Use
  Company Number: US-PFIZER INC-2012015348

PATIENT
  Sex: Male
  Weight: 117.91 kg

DRUGS (18)
  1. LISINOPRIL [Concomitant]
     Indication: CARDIAC DISORDER
     Dosage: 20 MG DAILY
  2. BUPROPION [Concomitant]
     Dosage: 150 MG, 2X/DAY
  3. ASCORBIC ACID [Concomitant]
     Dosage: 500 MG DAILY
  4. HYDROMORPHONE [Concomitant]
     Dosage: 2 MG, AS NEEDED
  5. NORFLEX [Concomitant]
     Dosage: 100 MG, TWO TIMES A DAY AS NEEDED
  6. GABAPENTIN [Concomitant]
     Dosage: 800 MG, 3X/DAY
  7. FISH OIL [Concomitant]
     Dosage: 1000 MG, 2X/DAY
  8. ASPIRIN [Concomitant]
     Dosage: 325 MG DAILY
  9. PLAVIX [Concomitant]
     Indication: ANTICOAGULANT THERAPY
     Dosage: 75 MG DAILY
     Route: 048
  10. PRISTIQ [Suspect]
     Dosage: 100 MG, 2X/DAY
     Route: 048
     Dates: end: 20120115
  11. NITROGLYCERIN [Concomitant]
     Dosage: 4 MG, AS NEEDED
  12. CYANOCOBALAMIN [Concomitant]
     Dosage: 1 MG DAILY
  13. METOPROLOL TARTRATE [Concomitant]
     Dosage: 25 MG, 2X/DAY
  14. VITAMIN D [Concomitant]
     Dosage: 50000 IU, WEEKLY
  15. PRISTIQ [Suspect]
     Indication: DEPRESSION
     Dosage: 100MG DAILY
     Route: 048
     Dates: start: 20090101
  16. ZOVIRAX [Concomitant]
     Dosage: 400 MG DAILY AS NEEDED
  17. LANSOPRAZOLE [Concomitant]
     Dosage: 30 MG DAILY
  18. CLONAZEPAM [Concomitant]
     Dosage: 3 MG, 2X/DAY

REACTIONS (1)
  - DRUG WITHDRAWAL SYNDROME [None]
